FAERS Safety Report 12698805 (Version 1)
Quarter: 2016Q3

REPORT INFORMATION
  Report Type: Report from Study
  Country: CA (occurrence: CA)
  Receive Date: 20160830
  Receipt Date: 20160830
  Transmission Date: 20161109
  Serious: Yes (Hospitalization)
  Sender: FDA-Public Use
  Company Number: CA-PFIZER INC-2011225388

PATIENT
  Age: 76 Year
  Sex: Male
  Weight: 90 kg

DRUGS (9)
  1. TYLENOL EXTRA STRENGTH [Concomitant]
     Active Substance: ACETAMINOPHEN
     Indication: HEADACHE
     Dosage: 500 MG, AS NEEDED
     Route: 048
     Dates: start: 20090416
  2. STRESSTABS [Concomitant]
     Active Substance: DIETARY SUPPLEMENT
     Indication: PROPHYLAXIS
     Dosage: 1 TABLET, 1X/DAY
     Route: 048
     Dates: start: 20040915
  3. COD-LIVER OIL [Concomitant]
     Active Substance: FISH OIL
     Indication: PROPHYLAXIS
     Dosage: 1 TABLET, 1X/DAY
     Route: 048
     Dates: start: 20040915
  4. IBUPROFEN. [Suspect]
     Active Substance: IBUPROFEN
     Indication: OSTEOARTHRITIS
     Dosage: UNK
     Route: 048
     Dates: start: 20090213, end: 20110919
  5. TYLENOL WITH CODEINE [Concomitant]
     Active Substance: ACETAMINOPHEN\CODEINE PHOSPHATE
     Indication: HEADACHE
  6. ACETYLSALICYLIC ACID [Concomitant]
     Active Substance: ASPIRIN
     Indication: PROPHYLAXIS
     Dosage: 81 MG, 1X/DAY
     Route: 048
     Dates: start: 20050128
  7. TYLENOL WITH CODEINE [Concomitant]
     Active Substance: ACETAMINOPHEN\CODEINE PHOSPHATE
     Indication: OSTEOARTHRITIS
     Dosage: 300/15/30 MG, AS NEEDED
     Route: 048
     Dates: start: 20050113
  8. NEXIUM [Concomitant]
     Active Substance: ESOMEPRAZOLE MAGNESIUM
     Indication: PROPHYLAXIS
     Dosage: 40 MG, 1X/DAY
     Route: 048
     Dates: start: 20090213, end: 20110919
  9. AVALIDE [Concomitant]
     Active Substance: HYDROCHLOROTHIAZIDE\IRBESARTAN
     Indication: HYPERTENSION
     Dosage: 300/12.5 MG, 1X/DAY
     Route: 048
     Dates: start: 20090620

REACTIONS (1)
  - Acute myocardial infarction [Recovered/Resolved]

NARRATIVE: CASE EVENT DATE: 20110919
